FAERS Safety Report 15211889 (Version 1)
Quarter: 2018Q3

REPORT INFORMATION
  Report Type: Spontaneous
  Country: US (occurrence: US)
  Receive Date: 20180729
  Receipt Date: 20180729
  Transmission Date: 20181010
  Serious: Yes (Hospitalization)
  Sender: FDA-Public Use
  Company Number: PHHY2018US051637

PATIENT
  Age: 58 Year
  Sex: Female

DRUGS (1)
  1. MIDOSTAURIN [Suspect]
     Active Substance: MIDOSTAURIN
     Indication: ACUTE MYELOID LEUKAEMIA
     Route: 065

REACTIONS (6)
  - Pulmonary oedema [Unknown]
  - Dyspnoea exertional [Recovering/Resolving]
  - Respiratory failure [Recovering/Resolving]
  - Pleural effusion [Unknown]
  - Pneumonitis [Unknown]
  - Hypoxia [Recovering/Resolving]
